FAERS Safety Report 8791316 (Version 1)
Quarter: 2012Q4

REPORT INFORMATION
  Report Type: Spontaneous
  Country: US (occurrence: None)
  Receive Date: 20120911
  Receipt Date: 20120911
  Transmission Date: 20130627
  Serious: No
  Sender: FDA-Public Use
  Company Number: USA/USA/12/0022947

PATIENT
  Age: 64 Year
  Sex: Male

DRUGS (13)
  1. ALLOPURINOL [Suspect]
     Dosage: 1 month before  - Stopped 2 in 1 D, Unknown
  2. AMLODIPINE BESYLATE [Suspect]
  3. LANSOPRAZOLE [Suspect]
  4. HYDROXYUREA [Suspect]
  5. LORAZEPAM (LORAZEPAM) [Suspect]
  6. AZITHROMYCIN [Suspect]
  7. CALCIUM [Suspect]
  8. FERROUS SULFATE [Suspect]
  9. DOCUSATE [Suspect]
  10. TAMSULOSIN [Suspect]
  11. POTASSIUM CITRATE [Suspect]
  12. FUROSEMIDE (FUROSEMIDE) [Suspect]
  13. CALCITRIOL [Suspect]

REACTIONS (2)
  - Interstitial granulomatous dermatitis [None]
  - Renal impairment [None]
